FAERS Safety Report 7429024-7 (Version None)
Quarter: 2011Q2

REPORT INFORMATION
  Report Type: 
  Country: None (occurrence: None)
  Receive Date: 20110421
  Receipt Date: 20110418
  Transmission Date: 20111010
  Serious: Yes (Hospitalization, Other)
  Sender: FDA-Public Use
  Company Number: US-ROCHE-751891

PATIENT
  Sex: Male
  Weight: 61.2 kg

DRUGS (5)
  1. ACCUTANE [Suspect]
     Route: 065
     Dates: start: 19900108, end: 19900208
  2. ACCUTANE [Suspect]
     Route: 065
     Dates: start: 19900209, end: 19900309
  3. ACCUTANE [Suspect]
     Route: 065
     Dates: start: 19900406, end: 19900506
  4. ACCUTANE [Suspect]
     Route: 065
     Dates: start: 19900511, end: 19900611
  5. ACCUTANE [Suspect]
     Route: 065
     Dates: start: 19900310, end: 19900405

REACTIONS (11)
  - GASTROENTERITIS [None]
  - DEPRESSION [None]
  - SUICIDAL IDEATION [None]
  - ANAL FISTULA [None]
  - PERIRECTAL ABSCESS [None]
  - POUCHITIS [None]
  - COLITIS ULCERATIVE [None]
  - ANAEMIA [None]
  - LEUKOCYTOSIS [None]
  - ANAL STENOSIS [None]
  - HAEMORRHOIDS [None]
